FAERS Safety Report 23476088 (Version 1)
Quarter: 2024Q1

REPORT INFORMATION
  Report Type: Report from Study
  Country: US (occurrence: US)
  Receive Date: 20240204
  Receipt Date: 20240204
  Transmission Date: 20240410
  Serious: No
  Sender: FDA-Public Use
  Company Number: US-EXELIXIS-CABO-23061833

PATIENT
  Age: 62 Year
  Sex: Female

DRUGS (16)
  1. CABOMETYX [Suspect]
     Active Substance: CABOZANTINIB S-MALATE
     Indication: Carcinoid tumour pulmonary
     Dosage: 60 MG
     Dates: start: 20230217, end: 202303
  2. CABOMETYX [Suspect]
     Active Substance: CABOZANTINIB S-MALATE
     Dosage: 60 MG
  3. CAPECITABINE [Concomitant]
     Active Substance: CAPECITABINE
  4. ALBUTEROL [Concomitant]
     Active Substance: ALBUTEROL
  5. VITAMIN C [Concomitant]
     Active Substance: ASCORBIC ACID
  6. CAT^S CLAW [Concomitant]
     Active Substance: CAT^S CLAW
  7. CLARITHROMYCIN [Concomitant]
     Active Substance: CLARITHROMYCIN
  8. VITAMIN B12 [Concomitant]
     Active Substance: CYANOCOBALAMIN
  9. LORAZEPAM [Concomitant]
     Active Substance: LORAZEPAM
  10. METHIMAZOLE [Concomitant]
     Active Substance: METHIMAZOLE
  11. METOPROLOL [Concomitant]
     Active Substance: METOPROLOL
  12. NYSTATIN [Concomitant]
     Active Substance: NYSTATIN
  13. ONDANSETRON [Concomitant]
     Active Substance: ONDANSETRON
  14. PRASTERONE [Concomitant]
     Active Substance: PRASTERONE
  15. TEMOZOLOMIDE [Concomitant]
     Active Substance: TEMOZOLOMIDE
  16. LIOTHYRONINE [Concomitant]
     Active Substance: LIOTHYRONINE

REACTIONS (8)
  - Body temperature decreased [Unknown]
  - Tooth disorder [Unknown]
  - Adverse drug reaction [Unknown]
  - Back pain [Unknown]
  - Nausea [Unknown]
  - Rash [Unknown]
  - Diarrhoea [Unknown]
  - Off label use [Unknown]

NARRATIVE: CASE EVENT DATE: 20230301
